FAERS Safety Report 21861545 (Version 3)
Quarter: 2023Q1

REPORT INFORMATION
  Report Type: Spontaneous
  Country: US (occurrence: US)
  Receive Date: 20230113
  Receipt Date: 20230306
  Transmission Date: 20230418
  Serious: No
  Sender: FDA-Public Use
  Company Number: US-PFIZER INC-202300013141

PATIENT
  Age: 71 Year
  Sex: Female
  Weight: 88.9 kg

DRUGS (2)
  1. LEVOXYL [Suspect]
     Active Substance: LEVOTHYROXINE SODIUM
     Indication: Hypothyroidism
     Dosage: 112 UG
     Route: 048
     Dates: start: 1996
  2. LEVOXYL [Suspect]
     Active Substance: LEVOTHYROXINE SODIUM
     Dosage: 125 UG

REACTIONS (3)
  - Drug level above therapeutic [Unknown]
  - Poor quality product administered [Unknown]
  - Product odour abnormal [Unknown]
